FAERS Safety Report 4450604-5 (Version None)
Quarter: 2004Q3

REPORT INFORMATION
  Report Type: 
  Country: None (occurrence: None)
  Receive Date: 20040913
  Receipt Date: 20040622
  Transmission Date: 20050211
  Serious: No
  Sender: FDA-Public Use
  Company Number: 2004-BP-05028BP(0)

PATIENT
  Age: 77 Year
  Sex: Female

DRUGS (9)
  1. SPIRIVA [Suspect]
     Indication: CHRONIC OBSTRUCTIVE AIRWAYS DISEASE
     Dosage: 18 MCG (18 MCG, 1 INH OD), IH
     Route: 055
     Dates: start: 20040613, end: 20040617
  2. ADVAIR (SERETIDE MITE) [Concomitant]
  3. THEOPHYLLINE [Concomitant]
  4. SYNTHROID [Concomitant]
  5. PREMARIN [Concomitant]
  6. PREDNISONE [Concomitant]
  7. MUCERIN [Concomitant]
  8. KCL (POTASSIUM CHLORIDE) [Concomitant]
  9. MGCL [Concomitant]

REACTIONS (1)
  - VISION BLURRED [None]
